FAERS Safety Report 23884257 (Version 1)
Quarter: 2024Q2

REPORT INFORMATION
  Report Type: Spontaneous
  Country: US (occurrence: None)
  Receive Date: 20240521
  Receipt Date: 20240521
  Transmission Date: 20240716
  Serious: Yes (Life-Threatening, Hospitalization)
  Sender: FDA-Public Use
  Company Number: None

PATIENT
  Age: 68 Year
  Sex: Female
  Weight: 79.8 kg

DRUGS (5)
  1. ORENCIA [Suspect]
     Active Substance: ABATACEPT
     Indication: Rheumatoid arthritis
     Dosage: FREQUENCY : ONCE;?
     Route: 042
  2. cetirizine tablet 10 mg [Concomitant]
     Dates: start: 20240521
  3. acetaminophen (tylenol) tab 650 mg [Concomitant]
     Dates: start: 20240521
  4. diphenhydramine (Benadryl) cap 25 mg [Concomitant]
  5. methylprednisolone sodium succinate injection 40 mg [Concomitant]

REACTIONS (6)
  - Speech disorder [None]
  - Nightmare [None]
  - Unresponsive to stimuli [None]
  - Dyspnoea [None]
  - Dizziness [None]
  - Therapy cessation [None]

NARRATIVE: CASE EVENT DATE: 20240521
